FAERS Safety Report 5125202-0 (Version None)
Quarter: 2006Q4

REPORT INFORMATION
  Report Type: 
  Country: None (occurrence: None)
  Receive Date: 20061006
  Receipt Date: 20061003
  Transmission Date: 20070319
  Serious: Yes (Life-Threatening, Hospitalization)
  Sender: FDA-Public Use
  Company Number: A0622319A

PATIENT
  Age: 27 Year
  Sex: Female

DRUGS (2)
  1. LAMICTAL [Suspect]
     Indication: BIPOLAR DISORDER
     Dosage: 50 MG/PER DAY/ ORAL
     Route: 048
     Dates: start: 20060401
  2. METRONIDAZOLE [Suspect]
     Indication: PYREXIA
     Dosage: 500 MG / PER DAY
     Dates: start: 20061001

REACTIONS (4)
  - CHILLS [None]
  - PYREXIA [None]
  - RASH ERYTHEMATOUS [None]
  - RASH PRURITIC [None]
